FAERS Safety Report 25648463 (Version 2)
Quarter: 2025Q4

REPORT INFORMATION
  Report Type: Report from Study
  Country: US (occurrence: US)
  Receive Date: 20250806
  Receipt Date: 20251017
  Transmission Date: 20260117
  Serious: Yes (Hospitalization)
  Sender: ALEXION PHARMACEUTICALS
  Company Number: US-ASTRAZENECA-202507USA029074US

PATIENT
  Sex: Female

DRUGS (3)
  1. BENRALIZUMAB [Suspect]
     Active Substance: BENRALIZUMAB
     Indication: Asthma
     Dosage: 30 MILLIGRAM, EVERY 4 WEEKS FOR 3 DOSES, LATER EVERY 8 WEEKS
  2. BENRALIZUMAB [Suspect]
     Active Substance: BENRALIZUMAB
  3. SOLU-MEDROL [Concomitant]
     Active Substance: METHYLPREDNISOLONE SODIUM SUCCINATE
     Dosage: UNK
     Route: 065

REACTIONS (6)
  - Myocardial infarction [Unknown]
  - Cardiac failure [Unknown]
  - Abdominal pain upper [Recovered/Resolved]
  - Diarrhoea [Recovered/Resolved]
  - Asthma [Unknown]
  - Back pain [Not Recovered/Not Resolved]
